FAERS Safety Report 7787603-1 (Version None)
Quarter: 2011Q3

REPORT INFORMATION
  Report Type: 
  Country: None (occurrence: None)
  Receive Date: 20110929
  Receipt Date: 20110922
  Transmission Date: 20111222
  Serious: Yes (Other)
  Sender: FDA-Public Use
  Company Number: US-GILEAD-2011-0043793

PATIENT

DRUGS (2)
  1. LETAIRIS [Suspect]
     Dosage: 10 MG, QD
     Route: 048
     Dates: start: 20110831
  2. LETAIRIS [Suspect]
     Indication: PULMONARY ARTERIAL HYPERTENSION
     Dosage: 5 MG, QD
     Route: 048
     Dates: start: 20080318, end: 20110831

REACTIONS (3)
  - PULMONARY ARTERIAL HYPERTENSION [None]
  - HEADACHE [None]
  - DYSPNOEA [None]
